FAERS Safety Report 9138992 (Version 2)
Quarter: 2013Q1

REPORT INFORMATION
  Report Type: Report from Study
  Country: US (occurrence: US)
  Receive Date: 20130305
  Receipt Date: 20130308
  Transmission Date: 20140127
  Serious: Yes (Hospitalization)
  Sender: FDA-Public Use
  Company Number: US-US-EMD SERONO, INC.-7196335

PATIENT
  Age: 59 None
  Sex: Female

DRUGS (3)
  1. REBIF [Suspect]
     Indication: MULTIPLE SCLEROSIS
     Route: 058
     Dates: start: 20051201, end: 20110103
  2. REBIF [Suspect]
     Route: 058
     Dates: start: 20110601, end: 20110701
  3. REBIF [Suspect]
     Route: 058
     Dates: start: 201302

REACTIONS (3)
  - Congenital megaureter [Recovering/Resolving]
  - Hydronephrosis [Recovering/Resolving]
  - Urinary tract infection [Unknown]
